FAERS Safety Report 23855280 (Version 3)
Quarter: 2024Q2

REPORT INFORMATION
  Report Type: Spontaneous
  Country: ES (occurrence: ES)
  Receive Date: 20240514
  Receipt Date: 20240605
  Transmission Date: 20240716
  Serious: Yes (Death)
  Sender: FDA-Public Use
  Company Number: ES-ALMIRALL-ES-2024-1038

PATIENT
  Age: 55 Year
  Sex: Male

DRUGS (6)
  1. IXEKIZUMAB [Suspect]
     Active Substance: IXEKIZUMAB
     Indication: Product used for unknown indication
     Dosage: UNK UNK, UNKNOWN
     Route: 065
  2. TILDRAKIZUMAB [Suspect]
     Active Substance: TILDRAKIZUMAB
     Indication: Psoriasis
     Dosage: 200 MG, UNKNOWN
     Route: 058
     Dates: start: 20240322
  3. ENSTILAR [Concomitant]
     Active Substance: BETAMETHASONE DIPROPIONATE\CALCIPOTRIENE HYDRATE
     Indication: Psoriasis
     Dosage: 15 DOSAGE FORM (APPLICATIONS), DAILY
     Route: 065
     Dates: start: 20220316
  4. PROPRANOLOL HYDROCHLORIDE [Concomitant]
     Active Substance: PROPRANOLOL HYDROCHLORIDE
     Indication: Arrhythmia
     Dosage: UNK, UNKNOWN
     Route: 065
  5. METFORMIN [Concomitant]
     Active Substance: METFORMIN HYDROCHLORIDE
     Indication: Type 2 diabetes mellitus
     Dosage: 425 MG, BID
     Route: 048
     Dates: start: 20210315
  6. OMEPRAZOLE [Concomitant]
     Active Substance: DONEPEZIL HYDROCHLORIDE\OMEPRAZOLE\OMEPRAZOLE MAGNESIUM
     Indication: Oesophagitis
     Dosage: 20 MG, BID
     Route: 048
     Dates: start: 20230703

REACTIONS (3)
  - Haemorrhage intracranial [Fatal]
  - Cerebral haemorrhage [Fatal]
  - Intracranial haematoma [Fatal]

NARRATIVE: CASE EVENT DATE: 20240327
